FAERS Safety Report 6535428-7 (Version None)
Quarter: 2009Q4

REPORT INFORMATION
  Report Type: 
  Country: None (occurrence: None)
  Receive Date: 20091228
  Receipt Date: 20090508
  Transmission Date: 20100525
  Serious: Yes (Other)
  Sender: FDA-Public Use
  Company Number: US-002873

PATIENT
  Age: 61 Year
  Sex: Male
  Weight: 164 kg

DRUGS (3)
  1. MULTIHANCE [Suspect]
     Indication: NUCLEAR MAGNETIC RESONANCE IMAGING
     Dosage: 20ML QD INTRAVENOUS
     Route: 042
     Dates: start: 20090506, end: 20090506
  2. MULTIHANCE [Suspect]
     Indication: PANCREATIC MASS
     Dosage: 20ML QD INTRAVENOUS
     Route: 042
     Dates: start: 20090506, end: 20090506
  3. UNSPECIFIED ANTI-HYPERTENSIVE DRUG [Concomitant]

REACTIONS (1)
  - HYPERSENSITIVITY [None]
